FAERS Safety Report 8975641 (Version 1)
Quarter: 2012Q4

REPORT INFORMATION
  Report Type: 
  Country: US (occurrence: US)
  Receive Date: 20121219
  Receipt Date: 20121219
  Transmission Date: 20130627
  Serious: No
  Sender: FDA-Public Use
  Company Number: US-PFIZER INC-2012321486

PATIENT
  Age: 75 Year
  Sex: Female
  Weight: 68.03 kg

DRUGS (4)
  1. LYRICA [Suspect]
     Indication: LEG PAIN
     Dosage: 75 mg, 2x/day
     Dates: start: 201201
  2. LYRICA [Suspect]
     Indication: NERVE COMPRESSION
  3. RAMIPRIL [Concomitant]
     Dosage: 5 mg, daily
  4. NADOLOL [Concomitant]
     Dosage: 20 mg, daily

REACTIONS (1)
  - Oedema peripheral [Not Recovered/Not Resolved]
